FAERS Safety Report 12678371 (Version 2)
Quarter: 2016Q3

REPORT INFORMATION
  Report Type: Spontaneous
  Country: US (occurrence: US)
  Receive Date: 20160823
  Receipt Date: 20160919
  Transmission Date: 20161109
  Serious: Yes (Hospitalization, Disabling, Other)
  Sender: FDA-Public Use
  Company Number: US-SHIRE-US201610461

PATIENT
  Age: 41 Year
  Sex: Female
  Weight: 68.27 kg

DRUGS (2)
  1. VYVANSE [Suspect]
     Active Substance: LISDEXAMFETAMINE DIMESYLATE
     Indication: NARCOLEPSY
     Dosage: 70 MG, 1X/DAY:QD
     Route: 048
     Dates: start: 2010
  2. VYVANSE [Suspect]
     Active Substance: LISDEXAMFETAMINE DIMESYLATE
     Dosage: UNK, UNKNOWN
     Route: 048
     Dates: start: 2009, end: 2010

REACTIONS (33)
  - Physical assault [Recovered/Resolved]
  - Intervertebral disc protrusion [Not Recovered/Not Resolved]
  - Product quality issue [Unknown]
  - Basedow^s disease [Unknown]
  - Condition aggravated [Not Recovered/Not Resolved]
  - Fatigue [Recovered/Resolved]
  - Product use issue [Not Recovered/Not Resolved]
  - Cardiac failure congestive [Unknown]
  - Depression [Not Recovered/Not Resolved]
  - Post-traumatic stress disorder [Not Recovered/Not Resolved]
  - General symptom [Recovered/Resolved]
  - Activities of daily living impaired [Not Recovered/Not Resolved]
  - Blood thyroid stimulating hormone increased [Recovered/Resolved]
  - Feeling abnormal [Recovered/Resolved]
  - Menopause [Not Recovered/Not Resolved]
  - Peripheral venous disease [Unknown]
  - Logorrhoea [Not Recovered/Not Resolved]
  - Paralysis [Recovered/Resolved]
  - Brain injury [Not Recovered/Not Resolved]
  - Thyroid cancer [Recovered/Resolved]
  - Disability [Not Recovered/Not Resolved]
  - Thyroid disorder [Recovered/Resolved]
  - Spinal column stenosis [Not Recovered/Not Resolved]
  - Hypertension [Recovered/Resolved]
  - Vomiting [Recovered/Resolved]
  - Cerebral haematoma [Recovered/Resolved]
  - Autoimmune hepatitis [Recovering/Resolving]
  - Sudden onset of sleep [Not Recovered/Not Resolved]
  - Product tampering [Unknown]
  - Drug dose omission [Unknown]
  - Atrial fibrillation [Not Recovered/Not Resolved]
  - Amnesia [Not Recovered/Not Resolved]
  - Hypoaesthesia [Not Recovered/Not Resolved]

NARRATIVE: CASE EVENT DATE: 2009
